FAERS Safety Report 12859807 (Version 4)
Quarter: 2017Q1

REPORT INFORMATION
  Report Type: Report from Study
  Country: US (occurrence: US)
  Receive Date: 20161018
  Receipt Date: 20170127
  Transmission Date: 20170428
  Serious: Yes (Death, Hospitalization)
  Sender: FDA-Public Use
  Company Number: US-B.I. PHARMACEUTICALS,INC./RIDGEFIELD-2015-BI-52016BP

PATIENT
  Sex: Male

DRUGS (1)
  1. OFEV [Suspect]
     Active Substance: NINTEDANIB
     Indication: IDIOPATHIC PULMONARY FIBROSIS
     Route: 048
     Dates: start: 20150803

REACTIONS (9)
  - Urinary tract infection [Unknown]
  - Asthenia [Unknown]
  - Blood glucose decreased [Unknown]
  - Hypertension [Unknown]
  - Vomiting [Unknown]
  - Cough [Unknown]
  - Diarrhoea [Unknown]
  - Thyroid disorder [Unknown]
  - Idiopathic pulmonary fibrosis [Fatal]
